FAERS Safety Report 5221625-X (Version None)
Quarter: 2007Q1

REPORT INFORMATION
  Report Type: 
  Country: None (occurrence: None)
  Receive Date: 20070126
  Receipt Date: 20070126
  Transmission Date: 20070707
  Serious: No
  Sender: FDA-Public Use
  Company Number: None

PATIENT
  Age: 65 Year
  Sex: Male
  Weight: 93.441 kg

DRUGS (1)
  1. HUMIRA [Suspect]
     Indication: PSORIATIC ARTHROPATHY
     Dosage: 40 MG EVERY 2 WKS SQ
     Route: 058
     Dates: start: 20060520, end: 20061122

REACTIONS (4)
  - DYSSTASIA [None]
  - IMPAIRED WORK ABILITY [None]
  - MUSCULAR WEAKNESS [None]
  - MYALGIA [None]
